FAERS Safety Report 12179745 (Version 11)
Quarter: 2018Q3

REPORT INFORMATION
  Report Type: Report from Study
  Country: PA (occurrence: PA)
  Receive Date: 20160314
  Receipt Date: 20180711
  Transmission Date: 20181010
  Serious: Yes (Other)
  Sender: FDA-Public Use
  Company Number: PHHY2016PA033333

PATIENT
  Age: 49 Year
  Sex: Male
  Weight: 64.4 kg

DRUGS (12)
  1. SANDOSTATIN LAR DEPOT [Suspect]
     Active Substance: OCTREOTIDE ACETATE
     Indication: NEUROENDOCRINE TUMOUR
     Dosage: UNK, QMO
     Route: 030
     Dates: start: 2013
  2. AFINITOR [Suspect]
     Active Substance: EVEROLIMUS
     Indication: NEUROENDOCRINE TUMOUR
     Dosage: 1 OT, UNK
     Route: 065
     Dates: start: 201605
  3. AFINITOR [Suspect]
     Active Substance: EVEROLIMUS
     Dosage: UNK
     Route: 065
     Dates: start: 20180628
  4. LUBRIDERM [Concomitant]
     Active Substance: AVOBENZONE\HOMOSALATE\OCTISALATE\OCTOCRYLENE\OXYBENZONE
     Indication: PROPHYLAXIS AGAINST DEHYDRATION
     Route: 065
  5. SANDOSTATIN LAR DEPOT [Suspect]
     Active Substance: OCTREOTIDE ACETATE
     Dosage: 40 MG, UNK
     Route: 030
  6. SANDOSTATIN LAR DEPOT [Suspect]
     Active Substance: OCTREOTIDE ACETATE
     Dosage: UNK
     Route: 030
     Dates: start: 20180620
  7. ATARAX [Concomitant]
     Active Substance: HYDROXYZINE HYDROCHLORIDE
     Indication: PRODUCT USED FOR UNKNOWN INDICATION
     Dosage: 0.5 DF, QD
     Route: 065
  8. EXFORGE [Suspect]
     Active Substance: AMLODIPINE BESYLATE\VALSARTAN
     Indication: HYPERTENSION
     Dosage: 1 DF, QD (IN THE MORNING) 10?320?25
     Route: 065
     Dates: start: 2014
  9. LEVALER [Concomitant]
     Indication: PRODUCT USED FOR UNKNOWN INDICATION
     Dosage: 1 DF, QD
     Route: 065
  10. SANDOSTATIN LAR DEPOT [Suspect]
     Active Substance: OCTREOTIDE ACETATE
     Dosage: 20 MG, QMO
     Route: 030
  11. SANDOSTATIN LAR DEPOT [Suspect]
     Active Substance: OCTREOTIDE ACETATE
     Dosage: UNK
     Route: 030
     Dates: start: 20171220
  12. AFINITOR [Suspect]
     Active Substance: EVEROLIMUS
     Dosage: UNK
     Route: 065
     Dates: start: 20180115

REACTIONS (27)
  - Psoriatic arthropathy [Unknown]
  - Bacterial infection [Unknown]
  - Psoriasis [Unknown]
  - Fatigue [Recovering/Resolving]
  - Asthenia [Recovering/Resolving]
  - Rash [Unknown]
  - Feeding disorder [Recovered/Resolved]
  - Xeroderma [Recovered/Resolved]
  - Weight decreased [Recovered/Resolved]
  - Pain [Recovering/Resolving]
  - Oedema peripheral [Recovered/Resolved]
  - Malaise [Unknown]
  - General physical condition abnormal [Unknown]
  - Eyelid oedema [Unknown]
  - Dry skin [Not Recovered/Not Resolved]
  - Oedema [Unknown]
  - Pulmonary mass [Unknown]
  - Skin swelling [Unknown]
  - Swelling face [Recovering/Resolving]
  - Skin abrasion [Recovered/Resolved]
  - Stomatitis [Recovered/Resolved]
  - Influenza [Unknown]
  - Oropharyngeal pain [Recovering/Resolving]
  - Acne [Unknown]
  - Photosensitivity reaction [Recovered/Resolved]
  - Face oedema [Unknown]
  - Pruritus [Unknown]

NARRATIVE: CASE EVENT DATE: 20160127
